FAERS Safety Report 11327946 (Version 3)
Quarter: 2015Q3

REPORT INFORMATION
  Report Type: Spontaneous
  Country: IE (occurrence: IE)
  Receive Date: 20150731
  Receipt Date: 20150926
  Transmission Date: 20151125
  Serious: Yes (Other)
  Sender: FDA-Public Use
  Company Number: IE-JNJFOC-20150718090

PATIENT
  Age: 4 Year
  Sex: Female

DRUGS (5)
  1. ZIRTEK [Suspect]
     Active Substance: CETIRIZINE HYDROCHLORIDE
     Indication: RASH
     Route: 048
     Dates: start: 201506, end: 20150625
  2. ZIRTEK [Suspect]
     Active Substance: CETIRIZINE HYDROCHLORIDE
     Indication: RASH
     Route: 048
  3. ZIRTEK [Suspect]
     Active Substance: CETIRIZINE HYDROCHLORIDE
     Indication: PHOTOSENSITIVITY REACTION
     Route: 048
     Dates: start: 201506, end: 20150625
  4. FLUTICASONE PROPIONATE. [Concomitant]
     Active Substance: FLUTICASONE PROPIONATE
     Indication: ASTHMA
     Route: 065
     Dates: start: 201209
  5. ZIRTEK [Suspect]
     Active Substance: CETIRIZINE HYDROCHLORIDE
     Indication: PHOTOSENSITIVITY REACTION
     Route: 048

REACTIONS (9)
  - Screaming [Recovered/Resolved]
  - Abnormal behaviour [Recovered/Resolved]
  - Skin injury [Recovered/Resolved]
  - Trichotillomania [Recovered/Resolved]
  - Aggression [Recovered/Resolved]
  - Obsessive thoughts [Recovered/Resolved]
  - Crying [Recovered/Resolved]
  - Agitation [Recovered/Resolved]
  - Hyperaesthesia [Recovered/Resolved]

NARRATIVE: CASE EVENT DATE: 201506
